FAERS Safety Report 4670444-1 (Version None)
Quarter: 2005Q2

REPORT INFORMATION
  Report Type: 
  Country: None (occurrence: None)
  Receive Date: 20050523
  Receipt Date: 20050516
  Transmission Date: 20051028
  Serious: Yes (Disabling)
  Sender: FDA-Public Use
  Company Number: US-MERCK-0505USA01842

PATIENT
  Age: 47 Year
  Sex: Female

DRUGS (4)
  1. VIOXX [Suspect]
     Indication: PAIN MANAGEMENT
     Route: 048
     Dates: start: 20000202, end: 20040930
  2. EFFEXOR XR [Concomitant]
     Route: 065
  3. AMBIEN [Concomitant]
     Route: 065
  4. PEPCID [Concomitant]
     Route: 048

REACTIONS (2)
  - CHEST PAIN [None]
  - FEELING GUILTY [None]
